FAERS Safety Report 12999696 (Version 2)
Quarter: 2017Q1

REPORT INFORMATION
  Report Type: Report from Study
  Country: MX (occurrence: MX)
  Receive Date: 20161205
  Receipt Date: 20170131
  Transmission Date: 20170428
  Serious: No
  Sender: FDA-Public Use
  Company Number: PHHY2015MX034244

PATIENT
  Sex: Female

DRUGS (3)
  1. TRILEPTAL [Suspect]
     Active Substance: OXCARBAZEPINE
     Dosage: 2 DF, QD
     Route: 065
  2. TRILEPTAL [Suspect]
     Active Substance: OXCARBAZEPINE
     Indication: SEIZURE
     Dosage: 1 DF, BID
     Route: 065
     Dates: start: 201010
  3. BRINTELLIX [Concomitant]
     Active Substance: VORTIOXETINE HYDROBROMIDE
     Indication: PRODUCT USED FOR UNKNOWN INDICATION
     Route: 065

REACTIONS (29)
  - Insomnia [Recovered/Resolved]
  - Depressed mood [Recovered/Resolved]
  - Pyrexia [Unknown]
  - Nasopharyngitis [Unknown]
  - Restlessness [Unknown]
  - Nervousness [Unknown]
  - Feeling abnormal [Recovered/Resolved]
  - Hormone level abnormal [Recovered/Resolved]
  - Depression [Recovered/Resolved]
  - Tremor [Unknown]
  - Anxiety [Not Recovered/Not Resolved]
  - Claustrophobia [Unknown]
  - Malaise [Not Recovered/Not Resolved]
  - Back injury [Recovered/Resolved]
  - Stress [Unknown]
  - Feeling abnormal [Unknown]
  - Pain in extremity [Recovered/Resolved]
  - Influenza [Unknown]
  - Sneezing [Not Recovered/Not Resolved]
  - Throat irritation [Unknown]
  - Decreased interest [Unknown]
  - Lethargy [Unknown]
  - Dyspnoea [Unknown]
  - Somnolence [Not Recovered/Not Resolved]
  - Stress [Recovered/Resolved]
  - Dysphonia [Unknown]
  - Agitation [Unknown]
  - Fatigue [Not Recovered/Not Resolved]
  - Irritability [Recovered/Resolved]
